FAERS Safety Report 12776791 (Version 5)
Quarter: 2017Q2

REPORT INFORMATION
  Report Type: Report from Study
  Country: US (occurrence: US)
  Receive Date: 20160923
  Receipt Date: 20170421
  Transmission Date: 20170830
  Serious: Yes (Death)
  Sender: FDA-Public Use
  Company Number: US-LUNDBECK-DKLU2019206

PATIENT
  Age: 66 Year
  Sex: Male
  Weight: 82 kg

DRUGS (13)
  1. DROXIDOPA [Suspect]
     Active Substance: DROXIDOPA
     Indication: PARKINSON^S DISEASE
     Route: 048
     Dates: start: 20160825, end: 20160827
  2. DROXIDOPA [Suspect]
     Active Substance: DROXIDOPA
     Route: 048
     Dates: start: 20160904, end: 20160906
  3. DROXIDOPA [Suspect]
     Active Substance: DROXIDOPA
     Route: 048
     Dates: start: 20160831, end: 20160903
  4. ADDERALL [Concomitant]
     Active Substance: AMPHETAMINE ASPARTATE\AMPHETAMINE SULFATE\DEXTROAMPHETAMINE SACCHARATE\DEXTROAMPHETAMINE SULFATE
     Indication: SOMNOLENCE
     Route: 048
     Dates: start: 201604
  5. PROSTATE [Concomitant]
     Active Substance: PROSTATE
     Indication: VITAMIN SUPPLEMENTATION
     Route: 048
     Dates: start: 2012
  6. DROXIDOPA [Suspect]
     Active Substance: DROXIDOPA
     Route: 048
     Dates: start: 20160907, end: 20160908
  7. ASPIRIN. [Concomitant]
     Active Substance: ASPIRIN
     Indication: CARDIOVASCULAR EVENT PROPHYLAXIS
     Route: 048
     Dates: start: 2010
  8. VENLAFAXINE [Concomitant]
     Active Substance: VENLAFAXINE HYDROCHLORIDE
     Indication: DEPRESSION
     Route: 048
     Dates: start: 201604
  9. METOPROLOL ER [Concomitant]
     Active Substance: METOPROLOL SUCCINATE
     Indication: ARRHYTHMIA
     Route: 048
     Dates: start: 2001
  10. CEREFOLIN [Concomitant]
     Active Substance: CYANOCOBALAMIN CO-57\LEVOMEFOLATE CALCIUM\PYRIDOXINE HYDROCHLORIDE\RIBOFLAVIN
     Indication: VITAMIN B12 DEFICIENCY
     Route: 048
  11. DROXIDOPA [Suspect]
     Active Substance: DROXIDOPA
     Route: 048
     Dates: start: 20160828, end: 20160830
  12. AZILECT [Concomitant]
     Active Substance: RASAGILINE MESYLATE
     Indication: PARKINSONISM
     Route: 048
     Dates: start: 20160112
  13. ALPRAZOLAM. [Concomitant]
     Active Substance: ALPRAZOLAM
     Indication: ANXIETY
     Route: 048
     Dates: start: 2010

REACTIONS (1)
  - Cerebral haemorrhage [Fatal]

NARRATIVE: CASE EVENT DATE: 20160908
